FAERS Safety Report 14891725 (Version 1)
Quarter: 2018Q2

REPORT INFORMATION
  Report Type: Spontaneous
  Country: US (occurrence: US)
  Receive Date: 20180426
  Receipt Date: 20180426
  Transmission Date: 20180711
  Serious: No
  Sender: FDA-Public Use
  Company Number: None

PATIENT
  Age: 57 Year
  Sex: Male
  Weight: 81 kg

DRUGS (6)
  1. ROPINEROLE 1 MG [Suspect]
     Active Substance: ROPINIROLE HYDROCHLORIDE
     Indication: RESTLESS LEGS SYNDROME
     Dosage: ?          QUANTITY:1 DF DOSAGE FORM;?
     Route: 048
     Dates: start: 20180307, end: 20180426
  2. SIMVASTATIN. [Concomitant]
     Active Substance: SIMVASTATIN
  3. ROPINEROLE [Concomitant]
     Active Substance: ROPINIROLE
  4. LOSARTIN [Concomitant]
     Active Substance: LOSARTAN
  5. FISH OIL [Concomitant]
     Active Substance: FISH OIL
  6. MULTIVITAMIN [Concomitant]
     Active Substance: VITAMINS

REACTIONS (4)
  - Extra dose administered [None]
  - Drug ineffective [None]
  - Insomnia [None]
  - Drug dispensing error [None]

NARRATIVE: CASE EVENT DATE: 20180307
